FAERS Safety Report 12030773 (Version 1)
Quarter: 2016Q1

REPORT INFORMATION
  Report Type: Report from Study
  Country: US (occurrence: US)
  Receive Date: 20160207
  Receipt Date: 20160207
  Transmission Date: 20160526
  Serious: No
  Sender: FDA-Public Use
  Company Number: US-ABBVIE-15K-163-1506313-00

PATIENT
  Age: 19 Year
  Sex: Female

DRUGS (1)
  1. HUMIRA [Suspect]
     Active Substance: ADALIMUMAB
     Indication: CROHN^S DISEASE
     Route: 058
     Dates: start: 20150904

REACTIONS (12)
  - Injection site pain [Unknown]
  - Diarrhoea [Unknown]
  - Injection site mass [Unknown]
  - Nausea [Unknown]
  - Headache [Not Recovered/Not Resolved]
  - Injection site rash [Recovered/Resolved]
  - Depressed mood [Unknown]
  - Anxiety [Unknown]
  - Injection site erythema [Unknown]
  - Rectal haemorrhage [Unknown]
  - Abdominal pain [Unknown]
  - Vomiting [Unknown]

NARRATIVE: CASE EVENT DATE: 201509
